FAERS Safety Report 17616605 (Version 2)
Quarter: 2020Q4

REPORT INFORMATION
  Report Type: Other
  Country: US (occurrence: US)
  Receive Date: 20200402
  Receipt Date: 20201208
  Transmission Date: 20210113
  Serious: Yes (Hospitalization)
  Sender: FDA-Public Use
  Company Number: US-ROCHE-2572476

PATIENT
  Age: 87 Year
  Sex: Female
  Weight: 83.08 kg

DRUGS (4)
  1. PREDNISONE. [Concomitant]
     Active Substance: PREDNISONE
     Indication: GIANT CELL ARTERITIS
     Dosage: ONGOING:NO
     Route: 048
  2. ACTEMRA [Suspect]
     Active Substance: TOCILIZUMAB
     Indication: GIANT CELL ARTERITIS
     Dosage: INJECT 162MG SUBCUTANEOUSLY EVERY WEEK
     Route: 058
  3. ACTEMRA [Suspect]
     Active Substance: TOCILIZUMAB
     Dosage: ONGOING:YES
     Route: 058
  4. ACTEMRA [Suspect]
     Active Substance: TOCILIZUMAB
     Dosage: ONGOING:NO
     Route: 058
     Dates: end: 201912

REACTIONS (4)
  - Pneumonia [Recovered/Resolved]
  - Cardiac failure [Recovered/Resolved]
  - Tremor [Not Recovered/Not Resolved]
  - Arthropathy [Not Recovered/Not Resolved]

NARRATIVE: CASE EVENT DATE: 20191225
